FAERS Safety Report 4436580-X (Version None)
Quarter: 2004Q3

REPORT INFORMATION
  Report Type: 
  Country: None (occurrence: None)
  Receive Date: 20040830
  Receipt Date: 20040707
  Transmission Date: 20050211
  Serious: No
  Sender: FDA-Public Use
  Company Number: US-BRISTOL-MYERS SQUIBB COMPANY-12634416

PATIENT
  Age: 49 Year
  Sex: Female
  Weight: 109 kg

DRUGS (4)
  1. ABILIFY [Suspect]
     Indication: PSYCHOTIC DISORDER
     Dosage: INITIATED AT A LOWER DOSE; TITRATED TO 30MG ABOUT 4 MONTHS AGO.
     Route: 048
     Dates: start: 20031101
  2. ZOLOFT [Concomitant]
     Dosage: INITIATED AT 100 MG/DAY
  3. METFORMIN HCL [Concomitant]
  4. IBUPROFEN [Concomitant]

REACTIONS (2)
  - INSOMNIA [None]
  - THINKING ABNORMAL [None]
